FAERS Safety Report 17581174 (Version 1)
Quarter: 2020Q1

REPORT INFORMATION
  Report Type: Spontaneous
  Country: US (occurrence: US)
  Receive Date: 20200325
  Receipt Date: 20200325
  Transmission Date: 20200409
  Serious: No
  Sender: FDA-Public Use
  Company Number: None

PATIENT
  Sex: Male

DRUGS (2)
  1. SUSTIVA [Suspect]
     Active Substance: EFAVIRENZ
  2. TENOFOVIR [Suspect]
     Active Substance: TENOFOVIR

REACTIONS (2)
  - Drug ineffective [None]
  - Candida infection [None]
